FAERS Safety Report 25191313 (Version 1)
Quarter: 2025Q2

REPORT INFORMATION
  Report Type: Spontaneous
  Country: RU (occurrence: RU)
  Receive Date: 20250411
  Receipt Date: 20250411
  Transmission Date: 20250717
  Serious: Yes (Hospitalization, Other)
  Sender: EISAI
  Company Number: RU-Eisai-EC-2024-163951

PATIENT
  Age: 36 Year
  Sex: Male

DRUGS (3)
  1. LENVIMA [Suspect]
     Active Substance: LENVATINIB
     Indication: Renal cancer
     Dates: start: 20230619, end: 202307
  2. LENVIMA [Suspect]
     Active Substance: LENVATINIB
     Dates: start: 202307, end: 202307
  3. PEMBROLIZUMAB [Concomitant]
     Active Substance: PEMBROLIZUMAB
     Indication: Renal cancer
     Dates: start: 20230619

REACTIONS (11)
  - Alanine aminotransferase increased [Recovering/Resolving]
  - Aspartate aminotransferase increased [Recovering/Resolving]
  - Blood bilirubin increased [Recovering/Resolving]
  - Oedema [Recovering/Resolving]
  - Pyrexia [Recovering/Resolving]
  - Blood lactate dehydrogenase increased [Recovering/Resolving]
  - C-reactive protein increased [Recovering/Resolving]
  - Leukocytosis [Recovering/Resolving]
  - Hypertension [Recovering/Resolving]
  - Immune-mediated thyroiditis [Recovering/Resolving]
  - Tachycardia [Recovering/Resolving]

NARRATIVE: CASE EVENT DATE: 20230701
